FAERS Safety Report 19737745 (Version 7)
Quarter: 2022Q1

REPORT INFORMATION
  Report Type: Report from Study
  Country: US (occurrence: US)
  Receive Date: 20210824
  Receipt Date: 20220221
  Transmission Date: 20220423
  Serious: Yes (Hospitalization, Other)
  Sender: FDA-Public Use
  Company Number: US-NOVARTISPH-NVSC2021US171053

PATIENT
  Age: 49 Year
  Sex: Female
  Weight: 81.633 kg

DRUGS (9)
  1. TREPROSTINIL [Suspect]
     Active Substance: TREPROSTINIL
     Indication: Pulmonary arterial hypertension
     Dosage: 35 NG/KG/MIN, CONT
     Route: 041
     Dates: start: 20210719
  2. TREPROSTINIL [Suspect]
     Active Substance: TREPROSTINIL
     Dosage: 0.036 MICROGRAM/KILOGRAM, CONT
     Route: 041
     Dates: start: 202107, end: 202107
  3. TREPROSTINIL [Suspect]
     Active Substance: TREPROSTINIL
     Dosage: 0.04 MICROGRAM/KILOGRAM, CONT
     Route: 041
     Dates: start: 202107
  4. TREPROSTINIL [Suspect]
     Active Substance: TREPROSTINIL
     Dosage: 5 MG, Q8H
     Route: 048
  5. TREPROSTINIL [Suspect]
     Active Substance: TREPROSTINIL
     Dosage: CONT
     Route: 042
  6. TREPROSTINIL [Suspect]
     Active Substance: TREPROSTINIL
     Dosage: 46 NG/KG/MIN, CONT
     Route: 042
     Dates: start: 20210719
  7. TREPROSTINIL [Suspect]
     Active Substance: TREPROSTINIL
     Dosage: UNK
     Route: 065
  8. TREPROSTINIL [Suspect]
     Active Substance: TREPROSTINIL
     Dosage: 46 NG/KG/MIN, CONT
     Route: 042
     Dates: start: 20210719
  9. OPSUMIT [Concomitant]
     Active Substance: MACITENTAN
     Indication: Product used for unknown indication
     Route: 065

REACTIONS (16)
  - COVID-19 [Recovered/Resolved]
  - Scleroderma [Unknown]
  - Pyrexia [Recovered/Resolved]
  - Abdominal discomfort [Unknown]
  - Peripheral swelling [Unknown]
  - Pain in jaw [Unknown]
  - Hyperhidrosis [Unknown]
  - Toothache [Unknown]
  - Pain in extremity [Unknown]
  - Joint swelling [Unknown]
  - Hand deformity [Unknown]
  - Musculoskeletal stiffness [Unknown]
  - Fatigue [Unknown]
  - Infusion site erythema [Unknown]
  - Infusion site inflammation [Unknown]
  - Oedema [Unknown]

NARRATIVE: CASE EVENT DATE: 20210723
